FAERS Safety Report 23321972 (Version 1)
Quarter: 2023Q4

REPORT INFORMATION
  Report Type: Spontaneous
  Country: US (occurrence: None)
  Receive Date: 20231220
  Receipt Date: 20231220
  Transmission Date: 20240110
  Serious: No
  Sender: FDA-Public Use
  Company Number: None

PATIENT
  Age: 31 Year
  Sex: Male
  Weight: 63 kg

DRUGS (3)
  1. DUPIXENT [Suspect]
     Active Substance: DUPILUMAB
     Indication: Eosinophilic oesophagitis
     Dates: start: 20231210
  2. VITAMINS [Concomitant]
     Active Substance: VITAMINS
  3. eczema cream [Concomitant]

REACTIONS (3)
  - Conjunctivitis [None]
  - Eczema [None]
  - Somnolence [None]
